FAERS Safety Report 7970270-1 (Version None)
Quarter: 2011Q4

REPORT INFORMATION
  Report Type: 
  Country: None (occurrence: None)
  Receive Date: 20111122
  Receipt Date: 20110822
  Transmission Date: 20120403
  Serious: No
  Sender: FDA-Public Use
  Company Number: PHEH2011US02173

PATIENT
  Age: 46 Year
  Sex: Male

DRUGS (7)
  1. CRANBERRY TABLET [Concomitant]
  2. NUVIGIL [Concomitant]
  3. VITAMIN D [Concomitant]
  4. OXCARBAZEPINE [Concomitant]
  5. GILENYA [Suspect]
     Indication: MULTIPLE SCLEROSIS
     Dosage: 0.5 MG, QD, ORAL
     Route: 048
     Dates: start: 20110401
  6. ASPIRIN [Concomitant]
  7. TAMSULOSIN HCL [Concomitant]

REACTIONS (5)
  - FATIGUE [None]
  - SENSATION OF HEAVINESS [None]
  - BURNING SENSATION [None]
  - MUSCULAR WEAKNESS [None]
  - BALANCE DISORDER [None]
